FAERS Safety Report 4439853-X (Version None)
Quarter: 2004Q3

REPORT INFORMATION
  Report Type: 
  Country: None (occurrence: None)
  Receive Date: 20040902
  Receipt Date: 20040701
  Transmission Date: 20050211
  Serious: Yes (Life-Threatening, Hospitalization)
  Sender: FDA-Public Use
  Company Number: US-ROCHE-373278

PATIENT
  Age: 55 Year
  Sex: Male
  Weight: 102.5 kg

DRUGS (1)
  1. NAPROSYN [Suspect]
     Route: 048
     Dates: start: 20040619, end: 20040622

REACTIONS (3)
  - GASTRITIS [None]
  - GASTROINTESTINAL HAEMORRHAGE [None]
  - OESOPHAGITIS [None]
